FAERS Safety Report 26036860 (Version 1)
Quarter: 2025Q4

REPORT INFORMATION
  Report Type: Spontaneous
  Country: US (occurrence: US)
  Receive Date: 20251112
  Receipt Date: 20251112
  Transmission Date: 20260117
  Serious: No
  Sender: PARATEK PHARMACEUTICALS
  Company Number: US-PARATEK PHARMACEUTICALS, INC.-2025PTK01009

PATIENT
  Age: 80 Year
  Sex: Male
  Weight: 104.31 kg

DRUGS (18)
  1. NUZYRA [Suspect]
     Active Substance: OMADACYCLINE
     Indication: Skin bacterial infection
     Dosage: 450 MG, 1X/DAY
     Route: 048
     Dates: start: 20250725, end: 20250726
  2. NUZYRA [Suspect]
     Active Substance: OMADACYCLINE
     Indication: Localised infection
     Dosage: 300 MG, 1X/DAY
     Route: 048
     Dates: start: 20250727, end: 20250804
  3. NUZYRA [Suspect]
     Active Substance: OMADACYCLINE
     Indication: Staphylococcal infection
  4. NUZYRA [Suspect]
     Active Substance: OMADACYCLINE
     Indication: Enterobacter infection
  5. TESTOSTERONE CYPIONATE [Concomitant]
     Active Substance: TESTOSTERONE CYPIONATE
     Dosage: UNK, 2X/MONTH (EVERY 2 WEEKS)
  6. RYBELSUS [Concomitant]
     Active Substance: SEMAGLUTIDE
  7. SOLIQUA 100/33 [Concomitant]
     Active Substance: INSULIN GLARGINE\LIXISENATIDE
  8. METFORMIN [Concomitant]
     Active Substance: METFORMIN HYDROCHLORIDE
  9. SIMVASTATIN [Concomitant]
     Active Substance: SIMVASTATIN
  10. LOSARTAN [Concomitant]
     Active Substance: LOSARTAN
  11. ALBUTEROL SULFATE [Concomitant]
     Active Substance: ALBUTEROL SULFATE
  12. NIFEDIPINE [Concomitant]
     Active Substance: NIFEDIPINE
  13. ELIQUIS [Concomitant]
     Active Substance: APIXABAN
  14. TORSEMIDE [Concomitant]
     Active Substance: TORSEMIDE
  15. MAGNESIUM OXIDE [Concomitant]
     Active Substance: MAGNESIUM OXIDE
  16. KERENDIA [Concomitant]
     Active Substance: FINERENONE
  17. SPIRONOLACTONE [Concomitant]
     Active Substance: SPIRONOLACTONE
  18. LEVOTHYROXINE [Concomitant]
     Active Substance: LEVOTHYROXINE

REACTIONS (3)
  - Rash [Recovered/Resolved]
  - Pain [Recovered/Resolved]
  - Gait disturbance [Recovered/Resolved]

NARRATIVE: CASE EVENT DATE: 20250801
